FAERS Safety Report 13232282 (Version 2)
Quarter: 2017Q1

REPORT INFORMATION
  Report Type: Spontaneous
  Country: JP (occurrence: JP)
  Receive Date: 20170214
  Receipt Date: 20170314
  Transmission Date: 20170428
  Serious: Yes (Death, Hospitalization)
  Sender: FDA-Public Use
  Company Number: JP-MYLANLABS-2017M1008735

PATIENT

DRUGS (19)
  1. ONCOVIN [Suspect]
     Active Substance: VINCRISTINE SULFATE
     Indication: B-CELL LYMPHOMA STAGE IV
     Dosage: 1.9 MG, UNK
     Route: 041
     Dates: start: 20141023
  2. PROCARBAZINE [Suspect]
     Active Substance: PROCARBAZINE
     Indication: B-CELL LYMPHOMA STAGE IV
     Route: 065
  3. DEXAMETHASONE. [Concomitant]
     Active Substance: DEXAMETHASONE
     Indication: PRODUCT USED FOR UNKNOWN INDICATION
     Route: 065
  4. ISONIAZID. [Concomitant]
     Active Substance: ISONIAZID
     Indication: TUBERCULOSIS
     Dosage: 250 MG
     Route: 065
  5. ETHAMBUTOL [Concomitant]
     Active Substance: ETHAMBUTOL HYDROCHLORIDE
     Indication: TUBERCULOSIS
     Dosage: 750 MG
     Route: 065
  6. CRAVIT [Concomitant]
     Active Substance: LEVOFLOXACIN
     Indication: INFECTION PROPHYLAXIS
     Dosage: 10 MG, UNK
     Route: 048
     Dates: start: 20141210, end: 20141221
  7. BAKTAR [Concomitant]
     Active Substance: SULFAMETHOXAZOLE\TRIMETHOPRIM
     Indication: INFECTION PROPHYLAXIS
     Dosage: 10 MG, UNK
     Route: 048
     Dates: start: 20141210, end: 20141221
  8. METHOTREXATE. [Concomitant]
     Active Substance: METHOTREXATE
     Indication: PRODUCT USED FOR UNKNOWN INDICATION
     Route: 065
  9. PYRAZINAMIDE. [Concomitant]
     Active Substance: PYRAZINAMIDE
     Indication: TUBERCULOSIS
     Dosage: 1200 MG
     Route: 065
  10. STREPTOMYCIN [Concomitant]
     Active Substance: STREPTOMYCIN\STREPTOMYCIN SULFATE
     Indication: TUBERCULOSIS
     Dosage: 750 MG
     Route: 065
  11. ADRIACIN [Suspect]
     Active Substance: DOXORUBICIN HYDROCHLORIDE
     Indication: B-CELL LYMPHOMA STAGE IV
     Dosage: 70 MG, UNK
     Route: 041
     Dates: start: 20141023
  12. ENDOXAN                            /00021101/ [Suspect]
     Active Substance: CYCLOPHOSPHAMIDE
     Indication: B-CELL LYMPHOMA STAGE IV
     Dosage: 1000 MG, UNK
     Route: 041
     Dates: start: 20141023
  13. MEROPENEM. [Concomitant]
     Active Substance: MEROPENEM
     Indication: MENINGITIS
     Route: 065
  14. ACICLOVIR [Concomitant]
     Active Substance: ACYCLOVIR
     Indication: MENINGITIS
     Route: 065
  15. RIFAMPICIN [Suspect]
     Active Substance: RIFAMPIN
     Indication: TUBERCULOSIS
     Dosage: 450 MG
     Route: 065
  16. PREDNISOLONE. [Suspect]
     Active Substance: PREDNISOLONE
     Indication: B-CELL LYMPHOMA STAGE IV
     Dosage: 80 MG, UNK
     Route: 048
     Dates: start: 20141023
  17. RITUXAN [Suspect]
     Active Substance: RITUXIMAB
     Indication: B-CELL LYMPHOMA STAGE IV
     Dosage: 500 MG, UNK
     Route: 041
  18. VANCOMYCIN [Concomitant]
     Active Substance: VANCOMYCIN
     Indication: MENINGITIS
     Route: 065
  19. PREDNISOLONE. [Concomitant]
     Active Substance: PREDNISOLONE
     Indication: STEROID THERAPY
     Dosage: 60 MG FOR 28 DAYS, 30 MG FOR 28 DAYS, 15 MG FOR 14 DAYS, 5 MG FOR 7 DAYS SCHEDULED
     Route: 065

REACTIONS (4)
  - Immunosuppression [Not Recovered/Not Resolved]
  - Hepatic function abnormal [Recovering/Resolving]
  - Meningitis tuberculous [Fatal]
  - Hydrocephalus [Fatal]

NARRATIVE: CASE EVENT DATE: 20141214
